FAERS Safety Report 23921769 (Version 1)
Quarter: 2024Q2

REPORT INFORMATION
  Report Type: Spontaneous
  Country: US (occurrence: US)
  Receive Date: 20240530
  Receipt Date: 20240530
  Transmission Date: 20240715
  Serious: No
  Sender: FDA-Public Use
  Company Number: US-BAUSCHBL-2024BNL027593

PATIENT
  Sex: Female

DRUGS (2)
  1. LUMIFY [Suspect]
     Active Substance: BRIMONIDINE TARTRATE
     Indication: Visual brightness
     Route: 065
  2. LUMIFY [Suspect]
     Active Substance: BRIMONIDINE TARTRATE
     Indication: Ocular hyperaemia

REACTIONS (4)
  - Vertigo [Unknown]
  - Vomiting [Unknown]
  - Sleep disorder [Unknown]
  - Dizziness [Unknown]
